FAERS Safety Report 16693097 (Version 2)
Quarter: 2019Q3

REPORT INFORMATION
  Report Type: Spontaneous
  Country: FR (occurrence: FR)
  Receive Date: 20190812
  Receipt Date: 20190815
  Transmission Date: 20191004
  Serious: Yes (Other)
  Sender: FDA-Public Use
  Company Number: FR-JNJFOC-20190805911

PATIENT
  Age: 62 Year
  Sex: Male

DRUGS (11)
  1. CYCLOPHOSPHAMIDE. [Suspect]
     Active Substance: CYCLOPHOSPHAMIDE
     Indication: MALIGNANT NEOPLASM OF PLEURA
     Dosage: CYCLIC EVERY 4 WEEKS
     Route: 065
     Dates: start: 199401
  2. CAELYX [Suspect]
     Active Substance: DOXORUBICIN HYDROCHLORIDE
     Indication: MALIGNANT NEOPLASM OF PLEURA
     Dosage: UNK, CYCLIC (EVERY 4 WEEKS); CYCLICAL
     Route: 065
     Dates: start: 199401
  3. CISPLATIN. [Suspect]
     Active Substance: CISPLATIN
     Indication: MALIGNANT NEOPLASM OF PLEURA
     Dosage: CYCLIC EVERY 4 WEEKS
     Route: 065
     Dates: start: 199401
  4. CYCLOPHOSPHAMIDE. [Suspect]
     Active Substance: CYCLOPHOSPHAMIDE
     Indication: SMALL CELL LUNG CANCER METASTATIC
  5. ETOPOSIDE. [Suspect]
     Active Substance: ETOPOSIDE
     Indication: SMALL CELL LUNG CANCER METASTATIC
  6. CAELYX [Suspect]
     Active Substance: DOXORUBICIN HYDROCHLORIDE
     Indication: SMALL CELL LUNG CANCER METASTATIC
  7. CISPLATIN. [Suspect]
     Active Substance: CISPLATIN
     Indication: SMALL CELL CARCINOMA
  8. ETOPOSIDE. [Suspect]
     Active Substance: ETOPOSIDE
     Indication: MALIGNANT NEOPLASM OF PLEURA
     Dosage: CYCLIC EVERY 4 WEEKS
     Route: 065
     Dates: start: 199401
  9. CAELYX [Suspect]
     Active Substance: DOXORUBICIN HYDROCHLORIDE
     Indication: SMALL CELL CARCINOMA
     Dosage: (ADRIAMYCIN) 22 MONTHS AFTER DIAGNOSIS OF SMALL CELL CARCINOMA
     Route: 065
  10. CYCLOPHOSPHAMIDE. [Suspect]
     Active Substance: CYCLOPHOSPHAMIDE
     Indication: SMALL CELL CARCINOMA
     Dosage: 22 MONTHS AFTER DIAGNOSIS OF SMALL CELL CARCINOMA
     Route: 065
  11. ETOPOSIDE. [Suspect]
     Active Substance: ETOPOSIDE
     Indication: SMALL CELL CARCINOMA
     Dosage: 100 MG/5 ML, SOLUTION INJECTABLE POUR PERFUSION, 22 MONTHS AFTER DIAGNOSIS OF SMALL CELL CARCINOMA
     Route: 065

REACTIONS (6)
  - Intervertebral discitis [Recovered/Resolved]
  - Polyneuropathy in malignant disease [Not Recovered/Not Resolved]
  - Myalgia [Not Recovered/Not Resolved]
  - Product use in unapproved indication [Unknown]
  - Off label use [Unknown]
  - Therapy partial responder [Unknown]

NARRATIVE: CASE EVENT DATE: 1994
